FAERS Safety Report 17966343 (Version 1)
Quarter: 2020Q2

REPORT INFORMATION
  Report Type: Spontaneous
  Country: CA (occurrence: CA)
  Receive Date: 20200630
  Receipt Date: 20200630
  Transmission Date: 20200714
  Serious: Yes (Other)
  Sender: FDA-Public Use
  Company Number: CA-FRESENIUS KABI-FK202006599

PATIENT
  Age: 6 Year
  Sex: Female

DRUGS (7)
  1. FOSCARNET SODIUM. [Concomitant]
     Active Substance: FOSCARNET SODIUM
     Indication: PRODUCT USED FOR UNKNOWN INDICATION
     Route: 065
  2. MYCOPHENOLATE MOFETIL. [Suspect]
     Active Substance: MYCOPHENOLATE MOFETIL
     Indication: IMMUNOSUPPRESSION
     Route: 065
  3. PREDNISONE. [Suspect]
     Active Substance: PREDNISONE
     Indication: IMMUNOSUPPRESSION
     Route: 065
  4. GANCICLOVIR FOR INJECTION (MANUFACTURER UNKNOWN) [Suspect]
     Active Substance: GANCICLOVIR
     Indication: CYTOMEGALOVIRUS INFECTION
     Route: 065
  5. GANCICLOVIR FOR INJECTION (MANUFACTURER UNKNOWN) [Suspect]
     Active Substance: GANCICLOVIR
     Route: 065
  6. IMMUNOGLOBULIN CYTOMEGALOVIRUS [Suspect]
     Active Substance: HUMAN CYTOMEGALOVIRUS IMMUNE GLOBULIN
     Indication: CYTOMEGALOVIRUS INFECTION
     Route: 065
  7. TACROLIMUS. [Suspect]
     Active Substance: TACROLIMUS
     Indication: IMMUNOSUPPRESSION
     Route: 065

REACTIONS (4)
  - Product use issue [Unknown]
  - Drug resistance [Unknown]
  - Cytomegalovirus infection [Unknown]
  - Gastroenteritis [Unknown]
